FAERS Safety Report 9053262 (Version 4)
Quarter: 2013Q1

REPORT INFORMATION
  Report Type: Report from Study
  Country: US (occurrence: US)
  Receive Date: 20130207
  Receipt Date: 20130322
  Transmission Date: 20140127
  Serious: Yes (Other)
  Sender: FDA-Public Use
  Company Number: US-FRI-1000042362

PATIENT
  Age: 8 None
  Sex: Male
  Weight: 28.8 kg

DRUGS (2)
  1. MEMANTINE (OPEN-LABEL) [Suspect]
     Indication: AUTISM
     Dosage: 3MG TITRATED TO  6 MG
     Route: 048
     Dates: start: 20121206, end: 20130129
  2. SERTRALINE [Concomitant]
     Indication: ANXIETY
     Dosage: 40 MG
     Route: 048
     Dates: start: 20111102

REACTIONS (1)
  - Abnormal behaviour [Recovered/Resolved]
